FAERS Safety Report 14320312 (Version 3)
Quarter: 2018Q1

REPORT INFORMATION
  Report Type: Spontaneous
  Country: US (occurrence: US)
  Receive Date: 20171222
  Receipt Date: 20180308
  Transmission Date: 20180509
  Serious: No
  Sender: FDA-Public Use
  Company Number: US-009507513-1712USA010898

PATIENT
  Sex: Female

DRUGS (6)
  1. CUBICIN [Suspect]
     Active Substance: DAPTOMYCIN
     Indication: ARTHRITIS INFECTIVE
     Dosage: UNK
     Route: 042
  2. INVANZ [Suspect]
     Active Substance: ERTAPENEM SODIUM
     Indication: PROPIONIBACTERIUM INFECTION
  3. INVANZ [Suspect]
     Active Substance: ERTAPENEM SODIUM
     Indication: ARTHRITIS INFECTIVE
     Dosage: UNK
     Route: 042
  4. CUBICIN [Suspect]
     Active Substance: DAPTOMYCIN
     Indication: PROPIONIBACTERIUM INFECTION
  5. CEFTRIAXONE. [Concomitant]
     Active Substance: CEFTRIAXONE
     Indication: ARTHRITIS INFECTIVE
     Route: 042
  6. CEFTRIAXONE. [Concomitant]
     Active Substance: CEFTRIAXONE
     Indication: PROPIONIBACTERIUM INFECTION

REACTIONS (1)
  - Product use in unapproved indication [Unknown]
